FAERS Safety Report 6449747-6 (Version None)
Quarter: 2009Q4

REPORT INFORMATION
  Report Type: 
  Country: None (occurrence: None)
  Receive Date: 20091120
  Receipt Date: 20091117
  Transmission Date: 20100525
  Serious: Yes (Other)
  Sender: FDA-Public Use
  Company Number: US-GENENTECH-293898

PATIENT
  Sex: Male
  Weight: 106.58 kg

DRUGS (9)
  1. XOLAIR [Suspect]
     Indication: ASTHMA
     Dosage: 300 MG, 1/MONTH
     Route: 058
     Dates: start: 20091023
  2. SYMBICORT [Concomitant]
     Indication: ASTHMA
     Dosage: 2 PUFF, TID
     Route: 025
  3. SINGULAIR [Concomitant]
     Indication: ASTHMA
     Dosage: 10 MG, QD
     Route: 048
  4. DUONEB [Concomitant]
     Indication: ASTHMA
     Dosage: UNK
     Route: 025
  5. COMBIVENT [Concomitant]
     Indication: ASTHMA
     Dosage: 2 PUFF, PRN
     Route: 025
  6. FLUTICASONE [Concomitant]
     Indication: RHINITIS ALLERGIC
     Dosage: 2 UNK, BID
  7. ZYRTEC-D 12 HOUR [Concomitant]
     Indication: RHINITIS ALLERGIC
     Dosage: 1 TABLET, QD
     Route: 048
  8. LOPRESSOR [Concomitant]
     Indication: CORONARY ARTERY DISEASE
     Dosage: 12.5 MG, BID
     Route: 048
  9. NEXIUM [Concomitant]
     Indication: GASTROOESOPHAGEAL REFLUX DISEASE
     Dosage: 40 MG, QD
     Route: 048

REACTIONS (3)
  - BRONCHOSPASM [None]
  - DYSPNOEA [None]
  - PRURITUS [None]
